FAERS Safety Report 5909722-4 (Version None)
Quarter: 2008Q4

REPORT INFORMATION
  Report Type: 
  Country: None (occurrence: None)
  Receive Date: 20081007
  Receipt Date: 20080926
  Transmission Date: 20090506
  Serious: Yes (Hospitalization, Other)
  Sender: FDA-Public Use
  Company Number: FR-JNJFOC-20080906606

PATIENT
  Age: 49 Year
  Sex: Female

DRUGS (2)
  1. REMICADE [Suspect]
     Dosage: 2ND INFUSION
     Route: 042
  2. REMICADE [Suspect]
     Indication: PSORIASIS
     Dosage: 1ST INFUSION
     Route: 042

REACTIONS (8)
  - ABDOMINAL PAIN [None]
  - ABDOMINAL PAIN LOWER [None]
  - ANAPHYLACTIC REACTION [None]
  - FLUSHING [None]
  - INFUSION RELATED REACTION [None]
  - PARAESTHESIA [None]
  - SKIN DISCOLOURATION [None]
  - THROAT TIGHTNESS [None]
